FAERS Safety Report 16735611 (Version 1)
Quarter: 2019Q3

REPORT INFORMATION
  Report Type: Spontaneous
  Country: US (occurrence: US)
  Receive Date: 20190823
  Receipt Date: 20190823
  Transmission Date: 20191005
  Serious: Yes (Disabling)
  Sender: FDA-Public Use
  Company Number: None

PATIENT
  Age: 25 Year
  Sex: Female

DRUGS (1)
  1. HUMALOG [Suspect]
     Active Substance: INSULIN LISPRO
     Indication: DIABETES MELLITUS
     Dosage: ?          QUANTITY:100 INJECTION(S);?
     Route: 058
     Dates: start: 20190820, end: 20190821

REACTIONS (4)
  - Drug ineffective [None]
  - Nausea [None]
  - Blood glucose increased [None]
  - Poor quality product administered [None]

NARRATIVE: CASE EVENT DATE: 20190821
